FAERS Safety Report 8278283-X (Version None)
Quarter: 2012Q2

REPORT INFORMATION
  Report Type: 
  Country: None (occurrence: None)
  Receive Date: 20120412
  Receipt Date: 20110920
  Transmission Date: 20120825
  Serious: No
  Sender: FDA-Public Use
  Company Number: US-ASTRAZENECA-2010SE30303

PATIENT
  Age: 57 Year
  Sex: Female

DRUGS (13)
  1. SUCRALFATE [Concomitant]
  2. NASONEX [Concomitant]
  3. METHYLPHENIDATE [Concomitant]
  4. OXYCONTIN [Concomitant]
  5. NEXIUM [Suspect]
     Route: 048
     Dates: start: 20091101
  6. CYMBALTA [Concomitant]
  7. RAMIPRIL [Concomitant]
  8. OMEPRAZOLE [Suspect]
     Route: 048
     Dates: start: 20100401
  9. METOPROLOL TARTRATE [Concomitant]
  10. CITALOPRAM HYDROBROMIDE [Concomitant]
  11. NEXIUM [Suspect]
     Route: 048
     Dates: end: 20091101
  12. CRESTOR [Suspect]
     Route: 048
  13. PERCOCET [Concomitant]

REACTIONS (5)
  - OESOPHAGEAL DISORDER [None]
  - DRUG DOSE OMISSION [None]
  - FEELING ABNORMAL [None]
  - OESOPHAGEAL ULCER [None]
  - DYSPHAGIA [None]
